FAERS Safety Report 22645950 (Version 1)
Quarter: 2023Q2

REPORT INFORMATION
  Report Type: Spontaneous
  Country: US (occurrence: US)
  Receive Date: 20230627
  Receipt Date: 20230627
  Transmission Date: 20230721
  Serious: No
  Sender: FDA-Public Use
  Company Number: US-ABBVIE-5305505

PATIENT
  Age: 55 Year
  Sex: Female

DRUGS (1)
  1. SKYRIZI [Suspect]
     Active Substance: RISANKIZUMAB-RZAA
     Indication: Crohn^s disease
     Dosage: FORM STRENGTH 600 MILLIGRAM
     Route: 042
     Dates: start: 202305

REACTIONS (4)
  - Fatigue [Unknown]
  - Pruritus [Unknown]
  - Rash [Unknown]
  - Alopecia [Unknown]

NARRATIVE: CASE EVENT DATE: 20230601
